FAERS Safety Report 4636418-1 (Version None)
Quarter: 2005Q2

REPORT INFORMATION
  Report Type: 
  Country: None (occurrence: None)
  Receive Date: 20050415
  Receipt Date: 20050324
  Transmission Date: 20051028
  Serious: Yes (Other)
  Sender: FDA-Public Use
  Company Number: JP-ROCHE-400143

PATIENT
  Age: 67 Year
  Sex: Female

DRUGS (7)
  1. TAMIFLU [Suspect]
     Route: 048
     Dates: start: 20050322
  2. TAMIFLU [Suspect]
     Route: 048
     Dates: end: 20050326
  3. SP [Concomitant]
     Indication: DRUG USE FOR UNKNOWN INDICATION
     Dosage: DOSAGE ROUTE AND FORM REPORTED AS ^OROPHARYNGEAL^ AND ^LOZENGE^
     Route: 050
  4. PL [Concomitant]
     Indication: DRUG USE FOR UNKNOWN INDICATION
     Route: 048
     Dates: start: 20050322, end: 20050322
  5. DASEN [Concomitant]
     Indication: DRUG USE FOR UNKNOWN INDICATION
     Route: 048
     Dates: start: 20050322, end: 20050322
  6. ANHIBA [Concomitant]
     Indication: DRUG USE FOR UNKNOWN INDICATION
     Route: 054
  7. SOLDEM [Concomitant]
     Indication: DRUG USE FOR UNKNOWN INDICATION
     Dosage: DRUG NAME REPORTED AS ^SOLDEM 3A^
     Route: 041

REACTIONS (3)
  - BACK PAIN [None]
  - FALL [None]
  - LOSS OF CONSCIOUSNESS [None]
